FAERS Safety Report 20160004 (Version 1)
Quarter: 2021Q4

REPORT INFORMATION
  Report Type: Spontaneous
  Country: CA (occurrence: CA)
  Receive Date: 20211208
  Receipt Date: 20211208
  Transmission Date: 20220303
  Serious: Yes (Life-Threatening, Hospitalization, Other)
  Sender: FDA-Public Use
  Company Number: CA-TEVA-2021-CA-1984555

PATIENT
  Age: 10 Year
  Sex: Male

DRUGS (10)
  1. HYDROMORPHONE HYDROCHLORIDE [Interacting]
     Active Substance: HYDROMORPHONE HYDROCHLORIDE
     Indication: Pain
     Dosage: FREQUENCY: EVERY 4 HOURS
     Route: 065
  2. HYDROMORPHONE HYDROCHLORIDE [Interacting]
     Active Substance: HYDROMORPHONE HYDROCHLORIDE
     Dosage: FREQUENCY: EVERY 4 HOURS
     Route: 065
  3. IBUPROFEN [Interacting]
     Active Substance: IBUPROFEN
     Indication: Pain
     Dosage: FREQUENCY: EVERY 6 HOURS
     Route: 048
  4. DESMOPRESSIN [Interacting]
     Active Substance: DESMOPRESSIN
     Indication: Diabetes insipidus
     Dosage: FREQUENCY: AS REQUIRED
     Route: 065
  5. DESMOPRESSIN [Interacting]
     Active Substance: DESMOPRESSIN
     Route: 050
  6. DESMOPRESSIN [Interacting]
     Active Substance: DESMOPRESSIN
     Dosage: FREQUENCY: EVERY 6 HOURS
     Route: 048
  7. HYDROCORTISONE [Concomitant]
     Active Substance: HYDROCORTISONE
     Indication: Diabetes insipidus
     Dosage: FREQUENCY: EVERY 12 HOURS
     Route: 048
  8. HYDROCORTISONE [Concomitant]
     Active Substance: HYDROCORTISONE
     Route: 065
  9. HYDROCORTISONE [Concomitant]
     Active Substance: HYDROCORTISONE
     Dosage: FREQUENCY: EVERY 8 HOURS
     Route: 048
  10. SOMATROPIN [Concomitant]
     Active Substance: SOMATROPIN
     Indication: Product used for unknown indication
     Dosage: FREQUENCY: EVERY 1 DAY
     Route: 058

REACTIONS (5)
  - Apnoeic attack [Recovered/Resolved]
  - Drug interaction [Recovered/Resolved]
  - Hyponatraemia [Recovered/Resolved]
  - Seizure [Recovered/Resolved]
  - Unresponsive to stimuli [Recovered/Resolved]
